FAERS Safety Report 17979953 (Version 2)
Quarter: 2020Q3

REPORT INFORMATION
  Report Type: Spontaneous
  Country: GB (occurrence: GB)
  Receive Date: 20200703
  Receipt Date: 20200717
  Transmission Date: 20201103
  Serious: Yes (Death, Other)
  Sender: FDA-Public Use
  Company Number: GB-MYLANLABS-2020M1059742

PATIENT
  Age: 52 Year
  Sex: Male

DRUGS (8)
  1. MELATONIN [Concomitant]
     Active Substance: MELATONIN
     Dosage: 2 MILLIGRAM, QD, NIGHT
  2. CODEINE PHOSPHATE HYDRATE [Suspect]
     Active Substance: CODEINE PHOSPHATE
     Indication: ANALGESIC THERAPY
     Dosage: 90 MILLIGRAM, QD
     Route: 048
     Dates: start: 20180102, end: 20200118
  3. OLANZAPINE. [Suspect]
     Active Substance: OLANZAPINE
     Indication: MENTAL DISORDER
     Dosage: 2 DOSAGE FORM, QD
  4. VENTOLIN [Concomitant]
     Active Substance: ALBUTEROL SULFATE
     Indication: WHEEZING
     Dosage: 1?2 PUFFS FOUR HOURLY WHEN REQUIRED, MAXIMUM OF 8 PUFFS IN 24 HOURS
  5. OMEPRAZOLE. [Concomitant]
     Active Substance: OMEPRAZOLE
     Dosage: 20 MILLIGRAM, QD
  6. SODIUM VALPROATE [Concomitant]
     Active Substance: VALPROATE SODIUM
     Dosage: 500 MILLIGRAM, QD
  7. CLOBAZAM. [Concomitant]
     Active Substance: CLOBAZAM
     Dosage: 10 MILLIGRAM, QD (NIGHT)
  8. AIRFLUSAL FORSPIRO [Concomitant]
     Active Substance: FLUTICASONE PROPIONATE\SALMETEROL XINAFOATE
     Dosage: 4 DOSAGE FORM, QD, 2 PUFFS, 25MCG/DOSE/250MCG/DOSE

REACTIONS (10)
  - Toxicity to various agents [Fatal]
  - Dyspnoea [Unknown]
  - Cold sweat [Unknown]
  - Somnolence [Unknown]
  - Cyanosis [Unknown]
  - Drug dependence [Unknown]
  - Emotional disorder [Unknown]
  - Hypersomnia [Unknown]
  - Dysarthria [Unknown]
  - Memory impairment [Unknown]

NARRATIVE: CASE EVENT DATE: 20200119
